FAERS Safety Report 8087287-1 (Version None)
Quarter: 2012Q1

REPORT INFORMATION
  Report Type: 
  Country: None (occurrence: None)
  Receive Date: 20120128
  Receipt Date: 20110516
  Transmission Date: 20120608
  Serious: No
  Sender: FDA-Public Use
  Company Number: US-ABBOTT-11P-163-0726007-00

PATIENT
  Age: 52 Year
  Sex: Male

DRUGS (2)
  1. HUMIRA [Suspect]
     Indication: ANKYLOSING SPONDYLITIS
     Dosage: INITIAL DOSE
     Dates: start: 20110428
  2. SULFASALAZINE [Concomitant]
     Indication: COLITIS ULCERATIVE

REACTIONS (2)
  - THROAT IRRITATION [None]
  - RESPIRATORY TRACT INFECTION [None]
